FAERS Safety Report 6657152-2 (Version None)
Quarter: 2010Q1

REPORT INFORMATION
  Report Type: 
  Country: None (occurrence: None)
  Receive Date: 20100330
  Receipt Date: 20100322
  Transmission Date: 20100710
  Serious: Yes (Other)
  Sender: FDA-Public Use
  Company Number: US-ASTRAZENECA-2007UW27900

PATIENT
  Age: 949 Month
  Sex: Female
  Weight: 93.4 kg

DRUGS (4)
  1. ARIMIDEX [Suspect]
     Indication: BREAST CANCER FEMALE
     Route: 048
     Dates: start: 20080101
  2. CALCIUM [Concomitant]
     Route: 065
  3. VITAMIN TAB [Concomitant]
     Route: 065
  4. GLUCOSAMINE W/CHONDROITIN [Concomitant]
     Route: 065

REACTIONS (5)
  - ARTHRALGIA [None]
  - BLINDNESS UNILATERAL [None]
  - COGNITIVE DISORDER [None]
  - HAIR GROWTH ABNORMAL [None]
  - JOINT STIFFNESS [None]
